FAERS Safety Report 10393502 (Version 1)
Quarter: 2014Q3

REPORT INFORMATION
  Report Type: Spontaneous
  Country: US (occurrence: US)
  Receive Date: 20140819
  Receipt Date: 20140819
  Transmission Date: 20150326
  Serious: Yes (Hospitalization)
  Sender: FDA-Public Use
  Company Number: US-B.I. PHARMACEUTICALS,INC./RIDGEFIELD-2014-BI-37486BP

PATIENT
  Age: 74 Year
  Sex: Male

DRUGS (10)
  1. LISINOPRIL. [Concomitant]
     Active Substance: LISINOPRIL
     Dosage: 20 MG
     Route: 065
  2. ZETIA [Concomitant]
     Active Substance: EZETIMIBE
     Dosage: 10 MG
     Route: 065
  3. FISH OIL [Concomitant]
     Active Substance: FISH OIL
     Dosage: 4 ANZ
     Route: 065
  4. K-DUR [Concomitant]
     Active Substance: POTASSIUM CHLORIDE
     Dosage: 20 MEQ
     Route: 065
  5. PRADAXA [Suspect]
     Active Substance: DABIGATRAN ETEXILATE MESYLATE
     Indication: ATRIAL FIBRILLATION
     Dosage: 300 MG
     Route: 048
     Dates: end: 20120619
  6. ATENOLOL. [Concomitant]
     Active Substance: ATENOLOL
     Dosage: 25 MG
     Route: 065
  7. LASIX [Concomitant]
     Active Substance: FUROSEMIDE
     Dosage: 20 MG
     Route: 065
  8. CHOLECALCIFEROL [Concomitant]
     Active Substance: CHOLECALCIFEROL
     Dosage: 1000 U
     Route: 065
  9. PRAVASTATIN [Concomitant]
     Active Substance: PRAVASTATIN\PRAVASTATIN SODIUM
     Dosage: 40 MG
     Route: 065
  10. TRICOR [Concomitant]
     Active Substance: FENOFIBRATE
     Dosage: 145 MG
     Route: 065

REACTIONS (6)
  - Gastrointestinal haemorrhage [Unknown]
  - Hypovolaemic shock [Unknown]
  - Coagulopathy [Unknown]
  - Fall [Unknown]
  - Haemorrhagic anaemia [Unknown]
  - Renal failure [Recovered/Resolved]

NARRATIVE: CASE EVENT DATE: 201206
